FAERS Safety Report 25539175 (Version 1)
Quarter: 2025Q3

REPORT INFORMATION
  Report Type: Spontaneous
  Country: CN (occurrence: CN)
  Receive Date: 20250710
  Receipt Date: 20250710
  Transmission Date: 20251020
  Serious: Yes (Other)
  Sender: PFIZER
  Company Number: CN-PFIZER INC-PV202500080079

PATIENT
  Age: 41 Year
  Sex: Female
  Weight: 64 kg

DRUGS (4)
  1. EPIRUBICIN [Suspect]
     Active Substance: EPIRUBICIN
     Indication: Neoplasm malignant
     Dosage: 170 MG, 1 TIME/21 DAYS
     Route: 041
     Dates: start: 20250429, end: 20250429
  2. EPIRUBICIN [Suspect]
     Active Substance: EPIRUBICIN
     Dosage: 170 MG, 1 TIME/21 DAYS
     Route: 041
     Dates: start: 20250520
  3. CYCLOPHOSPHAMIDE [Suspect]
     Active Substance: CYCLOPHOSPHAMIDE
     Indication: Neoplasm malignant
     Dosage: 1000 MG, 1 TIME/21 DAYS
     Route: 041
     Dates: start: 20250429, end: 20250429
  4. CYCLOPHOSPHAMIDE [Suspect]
     Active Substance: CYCLOPHOSPHAMIDE
     Dosage: 1000 MG, 1 TIME/21 DAYS
     Route: 041
     Dates: start: 20250520

REACTIONS (3)
  - Hepatitis B virus test positive [Unknown]
  - Disease recurrence [Unknown]
  - Alanine aminotransferase increased [Unknown]

NARRATIVE: CASE EVENT DATE: 20250609
